FAERS Safety Report 23033641 (Version 1)
Quarter: 2023Q4

REPORT INFORMATION
  Report Type: Spontaneous
  Country: US (occurrence: None)
  Receive Date: 20231004
  Receipt Date: 20231004
  Transmission Date: 20240109
  Serious: Yes (Death)
  Sender: FDA-Public Use
  Company Number: None

PATIENT
  Age: 81 Year
  Sex: Male
  Weight: 60.3 kg

DRUGS (7)
  1. CAPECITABINE [Suspect]
     Active Substance: CAPECITABINE
     Indication: Oesophageal carcinoma
     Dosage: FREQUENCY : TWICE A DAY;?
     Route: 048
     Dates: start: 20220422, end: 20230824
  2. Metoprolol Tartrage 50mg Tablets [Concomitant]
     Dates: start: 20220401, end: 20230824
  3. AMLODIPINE BESYLATE [Concomitant]
     Active Substance: AMLODIPINE BESYLATE
     Dates: start: 20220401, end: 20230824
  4. Esomeprazole 40mg Capsules [Concomitant]
     Dates: start: 20220101, end: 20230824
  5. Glipizide 5mg tablets [Concomitant]
     Dates: start: 20230802, end: 20230824
  6. GABAPENTIN [Concomitant]
     Active Substance: GABAPENTIN
     Dates: start: 20220901, end: 20230824
  7. TAMSULOSIN [Concomitant]
     Active Substance: TAMSULOSIN
     Dates: start: 20230802, end: 20230824

REACTIONS (1)
  - Death [None]

NARRATIVE: CASE EVENT DATE: 20230824
